FAERS Safety Report 19182337 (Version 2)
Quarter: 2021Q2

REPORT INFORMATION
  Report Type: Spontaneous
  Country: ES (occurrence: ES)
  Receive Date: 20210427
  Receipt Date: 20210510
  Transmission Date: 20210717
  Serious: Yes (Other)
  Sender: FDA-Public Use
  Company Number: ES-AUROBINDO-AUR-APL-2021-015927

PATIENT
  Age: 21 Year
  Sex: Male

DRUGS (14)
  1. CEFTAZIDIME. [Suspect]
     Active Substance: CEFTAZIDIME
     Dosage: 2 GRAM, 3 TIMES A DAY (REINTRODUCE CEFTAZIDIME 2 G TID)
     Route: 065
  2. SULFAMETHOXAZOLE;TRIMETHOPRIM [Concomitant]
     Active Substance: SULFAMETHOXAZOLE\TRIMETHOPRIM
     Indication: TELANGIECTASIA
  3. CEFTRIAXONE. [Concomitant]
     Active Substance: CEFTRIAXONE
     Indication: TELANGIECTASIA
     Dosage: 2 GRAM, TWO TIMES A DAY
     Route: 065
  4. CIPROFLOXACIN. [Concomitant]
     Active Substance: CIPROFLOXACIN
     Indication: BRAIN ABSCESS
     Dosage: 500 MILLIGRAM, TWO TIMES A DAY
     Route: 065
  5. LINEZOLID. [Concomitant]
     Active Substance: LINEZOLID
     Indication: BRAIN ABSCESS
     Dosage: UNK
     Route: 048
  6. METRONIDAZOLE. [Suspect]
     Active Substance: METRONIDAZOLE
     Indication: TELANGIECTASIA
     Dosage: 500 MILLIGRAM, FOUR TIMES/DAY
     Route: 042
  7. CIPROFLOXACIN. [Concomitant]
     Active Substance: CIPROFLOXACIN
     Indication: TELANGIECTASIA
     Dosage: 750 MILLIGRAM, TWO TIMES A DAY
     Route: 065
  8. DEXAMETHASONE. [Concomitant]
     Active Substance: DEXAMETHASONE
     Indication: BRAIN ABSCESS
     Dosage: 4 MILLIGRAM, 3 TIMES A DAY
     Route: 065
  9. SULFAMETHOXAZOLE;TRIMETHOPRIM [Concomitant]
     Active Substance: SULFAMETHOXAZOLE\TRIMETHOPRIM
     Indication: BRAIN ABSCESS
     Dosage: 1 DOSAGE FORM, TWO TIMES A DAY (800/160 MG BID)
     Route: 065
  10. CEFTAZIDIME. [Suspect]
     Active Substance: CEFTAZIDIME
     Indication: TELANGIECTASIA
     Dosage: 2 GRAM, 3 TIMES A DAY
     Route: 042
  11. CEFTRIAXONE. [Concomitant]
     Active Substance: CEFTRIAXONE
     Indication: BRAIN ABSCESS
  12. METRONIDAZOLE. [Suspect]
     Active Substance: METRONIDAZOLE
     Dosage: UNK
     Route: 048
  13. DEXAMETHASONE. [Concomitant]
     Active Substance: DEXAMETHASONE
     Indication: TELANGIECTASIA
  14. LINEZOLID. [Concomitant]
     Active Substance: LINEZOLID
     Indication: TELANGIECTASIA
     Dosage: 600 MILLIGRAM, 3 TIMES A DAY
     Route: 042

REACTIONS (2)
  - Toxicity to various agents [Recovering/Resolving]
  - Liver disorder [Recovering/Resolving]
